FAERS Safety Report 7201365-8 (Version None)
Quarter: 2010Q4

REPORT INFORMATION
  Report Type: 
  Country: None (occurrence: None)
  Receive Date: 20101229
  Receipt Date: 20101217
  Transmission Date: 20110411
  Serious: Yes (Hospitalization)
  Sender: FDA-Public Use
  Company Number: US-JNJFOC-20100807545

PATIENT
  Age: 24 Year
  Sex: Male
  Weight: 49.9 kg

DRUGS (6)
  1. RISPERDAL [Suspect]
     Indication: SCHIZOPHRENIA
     Route: 048
  2. INVEGA [Suspect]
     Indication: SCHIZOPHRENIA
     Route: 048
  3. UNKNOWN MEDICATION [Suspect]
     Indication: ILL-DEFINED DISORDER
     Route: 065
  4. SEROQUEL [Concomitant]
     Route: 048
  5. XANAX [Concomitant]
     Dosage: TWICE DAILY, AS NEEDED
     Route: 048
  6. REGLAN [Concomitant]
     Indication: VOMITING
     Dosage: TREATMENT END DATE: 2010
     Route: 048

REACTIONS (4)
  - AGITATION [None]
  - NAUSEA [None]
  - VOMITING [None]
  - WEIGHT DECREASED [None]
